FAERS Safety Report 5942301-1 (Version None)
Quarter: 2008Q4

REPORT INFORMATION
  Report Type: 
  Country: None (occurrence: None)
  Receive Date: 20081105
  Receipt Date: 20081031
  Transmission Date: 20090506
  Serious: Yes (Death, Congenital Anomaly, Other)
  Sender: FDA-Public Use
  Company Number: DE-WYE-G02483508

PATIENT
  Sex: Female

DRUGS (8)
  1. TREVILOR RETARD [Suspect]
     Indication: DEPRESSION
     Dosage: UNKNOWN
     Route: 064
     Dates: start: 20061201, end: 20070128
  2. TREVILOR RETARD [Suspect]
     Indication: PSYCHOTIC DISORDER
     Route: 064
     Dates: start: 20070129, end: 20071201
  3. TREVILOR RETARD [Suspect]
     Route: 064
     Dates: start: 20071201, end: 20080101
  4. TREVILOR RETARD [Suspect]
     Route: 064
     Dates: start: 20080101, end: 20080201
  5. TREVILOR RETARD [Suspect]
     Route: 064
     Dates: start: 20080201, end: 20080327
  6. FOLIC ACID [Concomitant]
     Indication: CONGENITAL ABNORMALITY PROPHYLAXIS
     Route: 064
  7. POTASSIUM IODIDE [Concomitant]
     Indication: CONGENITAL ABNORMALITY PROPHYLAXIS
     Route: 064
  8. SEROQUEL [Concomitant]
     Indication: DEPRESSION
     Route: 064
     Dates: start: 20061201, end: 20080118

REACTIONS (4)
  - ABORTION SPONTANEOUS [None]
  - DRUG EXPOSURE DURING PREGNANCY [None]
  - MATERNAL DRUGS AFFECTING FOETUS [None]
  - TRISOMY 15 [None]
